FAERS Safety Report 23282007 (Version 1)
Quarter: 2023Q4

REPORT INFORMATION
  Report Type: Spontaneous
  Country: US (occurrence: US)
  Receive Date: 20231211
  Receipt Date: 20231211
  Transmission Date: 20240110
  Serious: No
  Sender: FDA-Public Use
  Company Number: US-GSK-US2023AMR169942

PATIENT
  Age: 91 Year
  Sex: Female

DRUGS (1)
  1. ADVAIR DISKUS [Suspect]
     Active Substance: FLUTICASONE PROPIONATE\SALMETEROL XINAFOATE
     Indication: Chronic obstructive pulmonary disease
     Dosage: 1 PUFF(S), BID.250/50,EVERY 12 HOUR
     Route: 048
     Dates: start: 202310, end: 202311

REACTIONS (1)
  - Oral candidiasis [Unknown]

NARRATIVE: CASE EVENT DATE: 20231001
